FAERS Safety Report 5126506-8 (Version None)
Quarter: 2006Q4

REPORT INFORMATION
  Report Type: 
  Country: None (occurrence: None)
  Receive Date: 20061010
  Receipt Date: 20060927
  Transmission Date: 20070319
  Serious: Yes (Other)
  Sender: FDA-Public Use
  Company Number: 2006116474

PATIENT
  Age: 38 Year
  Sex: Male
  Weight: 89.8122 kg

DRUGS (5)
  1. GEODON [Suspect]
     Indication: BIPOLAR DISORDER
     Dosage: 240 MG
     Dates: start: 20030101
  2. TOPAMAX [Concomitant]
  3. LITHIUM CARBONATE [Concomitant]
  4. ALL OTHER THERAPEUTIC PRODUCTS (ALL OTHER THERAPEUTIC PRODUCTS) [Concomitant]
  5. LAMICTAL [Concomitant]

REACTIONS (7)
  - DEPRESSION [None]
  - DIARRHOEA [None]
  - DRUG INEFFECTIVE [None]
  - GRAND MAL CONVULSION [None]
  - NERVOUSNESS [None]
  - PANIC ATTACK [None]
  - PARANOIA [None]
